FAERS Safety Report 11139829 (Version 1)
Quarter: 2015Q2

REPORT INFORMATION
  Report Type: Spontaneous
  Country: CA (occurrence: CA)
  Receive Date: 20150527
  Receipt Date: 20150527
  Transmission Date: 20150821
  Serious: Yes (Other)
  Sender: FDA-Public Use
  Company Number: CA-B.I. PHARMACEUTICALS,INC./RIDGEFIELD-2015-BI-27623CN

PATIENT
  Age: 77 Year
  Sex: Male

DRUGS (3)
  1. ERYTHROMYCIN. [Suspect]
     Active Substance: ERYTHROMYCIN
     Indication: MICTURITION DISORDER
     Route: 065
  2. FLOMAX [Suspect]
     Active Substance: TAMSULOSIN HYDROCHLORIDE
     Indication: PRODUCT USED FOR UNKNOWN INDICATION
     Route: 065
  3. DETROL LA [Suspect]
     Active Substance: TOLTERODINE TARTRATE
     Indication: MICTURITION DISORDER
     Dosage: FORMULATION: CAPSULE, SUSTAINED RELEASE
     Route: 065

REACTIONS (5)
  - Diverticulitis [Unknown]
  - Incontinence [Unknown]
  - Micturition urgency [Unknown]
  - Drug interaction [Unknown]
  - Urinary retention [Unknown]
